FAERS Safety Report 5840397-9 (Version None)
Quarter: 2008Q3

REPORT INFORMATION
  Report Type: 
  Country: None (occurrence: None)
  Receive Date: 20080811
  Receipt Date: 20080729
  Transmission Date: 20090109
  Serious: Yes (Hospitalization)
  Sender: FDA-Public Use
  Company Number: DE-AMGEN-UK298266

PATIENT
  Age: 59 Year
  Sex: Female

DRUGS (2)
  1. KINERET [Suspect]
     Indication: RHEUMATOID ARTHRITIS
     Route: 065
     Dates: start: 20040501, end: 20040601
  2. METHOTREXATE [Suspect]
     Route: 065
     Dates: start: 20021101, end: 20060601

REACTIONS (2)
  - FALL [None]
  - FEMUR FRACTURE [None]
